FAERS Safety Report 16109141 (Version 1)
Quarter: 2019Q1

REPORT INFORMATION
  Report Type: Spontaneous
  Country: US (occurrence: US)
  Receive Date: 20190323
  Receipt Date: 20190323
  Transmission Date: 20190418
  Serious: No
  Sender: FDA-Public Use
  Company Number: US-THERAPEUTICSMD-2019TMD00176

PATIENT
  Age: 63 Year
  Sex: Female

DRUGS (2)
  1. IMVEXXY [Suspect]
     Active Substance: ESTRADIOL
     Dosage: 1 DOSAGE UNITS, 2X/WEEK BEFORE BED TIME
     Route: 067
     Dates: start: 2019, end: 20190218
  2. IMVEXXY [Suspect]
     Active Substance: ESTRADIOL
     Indication: DYSPAREUNIA
     Dosage: 1 DOSAGE UNITS
     Route: 067
     Dates: start: 201901, end: 2019

REACTIONS (4)
  - Vulvovaginal burning sensation [Not Recovered/Not Resolved]
  - Hypersensitivity [Not Recovered/Not Resolved]
  - Vulvovaginal pruritus [Not Recovered/Not Resolved]
  - Vulvovaginal discomfort [Not Recovered/Not Resolved]

NARRATIVE: CASE EVENT DATE: 201901
